FAERS Safety Report 5424178-6 (Version None)
Quarter: 2007Q3

REPORT INFORMATION
  Report Type: 
  Country: None (occurrence: None)
  Receive Date: 20070823
  Receipt Date: 20070816
  Transmission Date: 20080115
  Serious: Yes (Other)
  Sender: FDA-Public Use
  Company Number: PL-PFIZER INC-2007064844

PATIENT
  Sex: Male

DRUGS (4)
  1. CARDURA [Suspect]
     Indication: HYPERTENSION
     Route: 048
  2. ISOPTIN [Concomitant]
  3. TERTENSIF - SLOW RELEASE [Concomitant]
  4. PRESTARIUM [Concomitant]

REACTIONS (3)
  - BLOOD PRESSURE INCREASED [None]
  - DRY THROAT [None]
  - DYSPNOEA [None]
